FAERS Safety Report 10811249 (Version 1)
Quarter: 2015Q1

REPORT INFORMATION
  Report Type: Spontaneous
  Country: DE (occurrence: None)
  Receive Date: 20150212
  Receipt Date: 20150212
  Transmission Date: 20150721
  Serious: No
  Sender: FDA-Public Use
  Company Number: DE-LHC-2015018

PATIENT
  Sex: Female

DRUGS (1)
  1. CONOXIA (OXYGEN) (GAS FOR INHALATION) (VERUM) [Suspect]
     Active Substance: OXYGEN
     Indication: PRODUCT USED FOR UNKNOWN INDICATION
     Route: 055

REACTIONS (3)
  - Device leakage [None]
  - Nail disorder [None]
  - Injury [None]
